FAERS Safety Report 14808696 (Version 2)
Quarter: 2018Q3

REPORT INFORMATION
  Report Type: Report from Study
  Country: US (occurrence: US)
  Receive Date: 20180425
  Receipt Date: 20180719
  Transmission Date: 20181010
  Serious: No
  Sender: FDA-Public Use
  Company Number: US-AMGEN-USASL2018018311

PATIENT
  Age: 59 Year
  Sex: Male

DRUGS (2)
  1. REPATHA [Suspect]
     Active Substance: EVOLOCUMAB
     Indication: TYPE IIA HYPERLIPIDAEMIA
     Dosage: UNK
     Route: 065
     Dates: start: 20171226, end: 20180207
  2. REPATHA [Suspect]
     Active Substance: EVOLOCUMAB
     Indication: CARDIOVASCULAR DISORDER
     Dosage: 420 MG, QMO
     Route: 065
     Dates: start: 20180207

REACTIONS (7)
  - Decreased appetite [Recovered/Resolved]
  - Upper respiratory tract infection [Recovering/Resolving]
  - Influenza like illness [Recovered/Resolved]
  - Nasopharyngitis [Unknown]
  - Erectile dysfunction [Unknown]
  - Nausea [Recovered/Resolved]
  - Rhinorrhoea [Recovered/Resolved]

NARRATIVE: CASE EVENT DATE: 20171228
